FAERS Safety Report 9460793 (Version 2)
Quarter: 2013Q3

REPORT INFORMATION
  Report Type: Spontaneous
  Country: US (occurrence: US)
  Receive Date: 20130815
  Receipt Date: 20130906
  Transmission Date: 20140515
  Serious: No
  Sender: FDA-Public Use
  Company Number: US-009507513-1308USA003974

PATIENT
  Sex: Female
  Weight: 101.59 kg

DRUGS (4)
  1. NEXPLANON [Suspect]
     Indication: CONTRACEPTION
     Dosage: UNK, ONE STANDARD PACKAGE OF PF APPL OF 1
     Route: 059
     Dates: start: 201304, end: 20130807
  2. XANAX [Concomitant]
  3. ZOLOFT [Concomitant]
  4. LUNESTA [Concomitant]

REACTIONS (3)
  - Implant site pain [Recovered/Resolved]
  - Device breakage [Recovered/Resolved]
  - Product quality issue [Unknown]
